FAERS Safety Report 6510769-8 (Version None)
Quarter: 2009Q4

REPORT INFORMATION
  Report Type: 
  Country: None (occurrence: None)
  Receive Date: 20091222
  Receipt Date: 20091211
  Transmission Date: 20100525
  Serious: Yes (Hospitalization)
  Sender: FDA-Public Use
  Company Number: US-CELGENEUS-163-21880-09111294

PATIENT
  Sex: Male

DRUGS (5)
  1. REVLIMID [Suspect]
     Indication: MULTIPLE MYELOMA
     Route: 048
     Dates: start: 20090401
  2. REVLIMID [Suspect]
     Route: 048
     Dates: start: 20080201, end: 20080401
  3. REVLIMID [Suspect]
     Route: 048
     Dates: start: 20081201, end: 20090101
  4. ANTI-HYPERTENSIVES [Suspect]
     Indication: DRUG USE FOR UNKNOWN INDICATION
  5. DECADRON [Concomitant]
     Indication: DRUG USE FOR UNKNOWN INDICATION
     Route: 065

REACTIONS (2)
  - ISCHAEMIC CARDIOMYOPATHY [None]
  - OVERDOSE [None]
